FAERS Safety Report 7399452-7 (Version None)
Quarter: 2011Q2

REPORT INFORMATION
  Report Type: 
  Country: None (occurrence: None)
  Receive Date: 20110407
  Receipt Date: 20110328
  Transmission Date: 20111010
  Serious: Yes (Death, Hospitalization)
  Sender: FDA-Public Use
  Company Number: PHHY2011TN25536

PATIENT
  Sex: Male
  Weight: 60 kg

DRUGS (1)
  1. STI571/CGP57148B [Suspect]
     Indication: GASTROINTESTINAL STROMAL TUMOUR
     Dosage: 400 MG, PER DAY
     Route: 048
     Dates: start: 20100626

REACTIONS (4)
  - SUBDURAL HAEMATOMA [None]
  - GINGIVAL BLEEDING [None]
  - ALTERED STATE OF CONSCIOUSNESS [None]
  - CARDIAC ARREST [None]
